FAERS Safety Report 21686903 (Version 1)
Quarter: 2022Q4

REPORT INFORMATION
  Report Type: Spontaneous
  Country: DE (occurrence: DE)
  Receive Date: 20221206
  Receipt Date: 20221206
  Transmission Date: 20230113
  Serious: Yes (Other)
  Sender: FDA-Public Use
  Company Number: DE-drreddys-LIT/GER/22/0157749

PATIENT
  Age: 65 Year
  Sex: Female

DRUGS (6)
  1. OLANZAPINE [Suspect]
     Active Substance: OLANZAPINE
     Indication: Psychotic disorder
  2. CLOZAPINE [Suspect]
     Active Substance: CLOZAPINE
     Indication: Psychotic disorder
  3. CITALOPRAM [Suspect]
     Active Substance: CITALOPRAM HYDROBROMIDE
     Indication: Psychotic disorder
  4. MIRTAZAPINE [Suspect]
     Active Substance: MIRTAZAPINE
     Indication: Psychotic disorder
  5. AMISULPRIDE [Suspect]
     Active Substance: AMISULPRIDE
     Indication: Psychotic disorder
  6. DOXEPIN [Suspect]
     Active Substance: DOXEPIN
     Indication: Psychotic disorder

REACTIONS (3)
  - Dystonia [Recovered/Resolved]
  - Drug ineffective [Unknown]
  - Product use in unapproved indication [Unknown]
